FAERS Safety Report 23210644 (Version 1)
Quarter: 2023Q4

REPORT INFORMATION
  Report Type: Spontaneous
  Country: GB (occurrence: GB)
  Receive Date: 20231121
  Receipt Date: 20231121
  Transmission Date: 20240109
  Serious: Yes (Life-Threatening, Other)
  Sender: FDA-Public Use
  Company Number: None

PATIENT
  Age: 85 Year
  Sex: Male
  Weight: 63 kg

DRUGS (1)
  1. BACLOFEN [Suspect]
     Active Substance: BACLOFEN
     Indication: Adverse drug reaction
     Dosage: 20 MG AM 20 MG. PM
     Route: 065
     Dates: start: 20231013, end: 20231015

REACTIONS (3)
  - Delirium [Recovered/Resolved]
  - Psychomotor hyperactivity [Recovered/Resolved]
  - Medication error [Unknown]

NARRATIVE: CASE EVENT DATE: 20231014
